FAERS Safety Report 21263002 (Version 1)
Quarter: 2022Q3

REPORT INFORMATION
  Report Type: Spontaneous
  Country: CN (occurrence: None)
  Receive Date: 20220828
  Receipt Date: 20220828
  Transmission Date: 20221027
  Serious: Yes (Other)
  Sender: FDA-Public Use
  Company Number: CN-ROCHE-3168538

PATIENT

DRUGS (32)
  1. GAZYVA [Suspect]
     Active Substance: OBINUTUZUMAB
     Indication: Mantle cell lymphoma
     Route: 042
     Dates: start: 20220308
  2. GAZYVA [Suspect]
     Active Substance: OBINUTUZUMAB
     Dosage: TREATMENT ON 07-APR-2022, 30-APR-2022
     Route: 042
  3. RITUXIMAB [Concomitant]
     Active Substance: RITUXIMAB
     Indication: Mantle cell lymphoma
     Dates: start: 20201216
  4. RITUXIMAB [Concomitant]
     Active Substance: RITUXIMAB
     Dates: start: 20210114
  5. RITUXIMAB [Concomitant]
     Active Substance: RITUXIMAB
     Dates: start: 20220530
  6. RITUXIMAB [Concomitant]
     Active Substance: RITUXIMAB
     Dates: start: 20220625
  7. RITUXIMAB [Concomitant]
     Active Substance: RITUXIMAB
     Dates: start: 20220727
  8. CYCLOPHOSPHAMIDE [Concomitant]
     Active Substance: CYCLOPHOSPHAMIDE
     Indication: Mantle cell lymphoma
     Dates: start: 20201216
  9. CYCLOPHOSPHAMIDE [Concomitant]
     Active Substance: CYCLOPHOSPHAMIDE
     Dates: start: 20220308
  10. CYCLOPHOSPHAMIDE [Concomitant]
     Active Substance: CYCLOPHOSPHAMIDE
     Dates: start: 20220530
  11. DOXORUBICIN HYDROCHLORIDE [Concomitant]
     Active Substance: DOXORUBICIN HYDROCHLORIDE
     Indication: Mantle cell lymphoma
     Dates: start: 20201216
  12. DOXORUBICIN HYDROCHLORIDE [Concomitant]
     Active Substance: DOXORUBICIN HYDROCHLORIDE
     Dates: start: 20220308
  13. DOXORUBICIN HYDROCHLORIDE [Concomitant]
     Active Substance: DOXORUBICIN HYDROCHLORIDE
     Dates: start: 20220530
  14. VINCRISTINE [Concomitant]
     Active Substance: VINCRISTINE
     Indication: Mantle cell lymphoma
     Dates: start: 20201216
  15. VINCRISTINE [Concomitant]
     Active Substance: VINCRISTINE
     Dates: start: 20220308
  16. VINCRISTINE [Concomitant]
     Active Substance: VINCRISTINE
     Dates: start: 20220530
  17. PREDNISONE [Concomitant]
     Active Substance: PREDNISONE
     Indication: Mantle cell lymphoma
     Dates: start: 20201216
  18. PREDNISONE [Concomitant]
     Active Substance: PREDNISONE
     Dates: start: 20220308
  19. PREDNISONE [Concomitant]
     Active Substance: PREDNISONE
     Dates: start: 20220530
  20. ETOPOSIDE [Concomitant]
     Active Substance: ETOPOSIDE
     Indication: Mantle cell lymphoma
     Dosage: 1.6 G/12
     Dates: start: 20210114
  21. ETOPOSIDE [Concomitant]
     Active Substance: ETOPOSIDE
  22. BENDAMUSTINE [Concomitant]
     Active Substance: BENDAMUSTINE
     Indication: Mantle cell lymphoma
     Dosage: 1.6 G/12
     Dates: start: 20210114
  23. BENDAMUSTINE [Concomitant]
     Active Substance: BENDAMUSTINE
     Dates: start: 20220625
  24. BENDAMUSTINE [Concomitant]
     Active Substance: BENDAMUSTINE
     Dates: start: 20220727
  25. CYTARABINE [Concomitant]
     Active Substance: CYTARABINE
     Indication: Mantle cell lymphoma
  26. CYTARABINE [Concomitant]
     Active Substance: CYTARABINE
     Dosage: TREATMENT ON 07-APR-2022,30-APR-2022
  27. CYTARABINE [Concomitant]
     Active Substance: CYTARABINE
     Dates: start: 20220625
  28. MELPHALAN [Concomitant]
     Active Substance: MELPHALAN
     Indication: Mantle cell lymphoma
  29. ZANUBRUTINIB [Concomitant]
     Active Substance: ZANUBRUTINIB
     Indication: Mantle cell lymphoma
     Route: 048
  30. DEXAMETHASONE [Concomitant]
     Active Substance: DEXAMETHASONE
     Indication: Mantle cell lymphoma
     Dosage: TREATMENT ON 07-APR-2022,30-APR-2022
  31. ORELABRUTINIB [Concomitant]
     Active Substance: ORELABRUTINIB
     Indication: Mantle cell lymphoma
     Dates: start: 20220530
  32. OXALIPLATIN [Concomitant]
     Active Substance: OXALIPLATIN
     Indication: Mantle cell lymphoma
     Dosage: TREATMENT ON 07-APR-2022,30-APR-2022

REACTIONS (2)
  - Myelosuppression [Recovering/Resolving]
  - Off label use [Unknown]
